FAERS Safety Report 8827199 (Version 3)
Quarter: 2012Q4

REPORT INFORMATION
  Report Type: 
  Country: JP (occurrence: JP)
  Receive Date: 20121005
  Receipt Date: 20121105
  Transmission Date: 20130627
  Serious: Yes (Hospitalization, Other)
  Sender: FDA-Public Use
  Company Number: JP-JNJFOC-20121002901

PATIENT
  Age: 76 Year
  Sex: Female
  Weight: 59 kg

DRUGS (6)
  1. XARELTO [Suspect]
     Indication: PRODUCT USED FOR UNKNOWN INDICATION
     Route: 048
     Dates: start: 20120829, end: 20120920
  2. TAKEPRON [Suspect]
     Indication: PRODUCT USED FOR UNKNOWN INDICATION
     Route: 048
     Dates: start: 20120814, end: 20120920
  3. LIPITOR [Concomitant]
     Route: 048
     Dates: end: 20120920
  4. JANUVIA [Concomitant]
     Route: 048
     Dates: end: 20120920
  5. METFORMIN HYDROCHLORIDE [Concomitant]
     Route: 048
     Dates: end: 20120920
  6. AMARYL [Concomitant]
     Route: 048
     Dates: end: 20120920

REACTIONS (2)
  - Drug eruption [Recovering/Resolving]
  - Muscle haemorrhage [Unknown]
